FAERS Safety Report 9356575 (Version 3)
Quarter: 2014Q3

REPORT INFORMATION
  Report Type: Spontaneous
  Country: JP (occurrence: JP)
  Receive Date: 20130619
  Receipt Date: 20140903
  Transmission Date: 20150326
  Serious: Yes (Hospitalization)
  Sender: FDA-Public Use
  Company Number: PHHY2013JP060782

PATIENT
  Sex: Female

DRUGS (14)
  1. ALPRAZOLAM. [Suspect]
     Active Substance: ALPRAZOLAM
     Dosage: 1.2 MG, (30 DF)
     Route: 048
  2. ALPRAZOLAM. [Suspect]
     Active Substance: ALPRAZOLAM
     Dosage: 2.4 MG, (30 DF)
     Route: 048
  3. BENZODIAZEPINE DERIVATIVES [Suspect]
     Active Substance: BENZODIAZEPINE
  4. LORAZEPAM. [Suspect]
     Active Substance: LORAZEPAM
     Dosage: 1.5 MG, UNK
     Route: 048
     Dates: start: 200609
  5. FLUVOXAMINE MALEATE. [Concomitant]
     Active Substance: FLUVOXAMINE MALEATE
     Dosage: 75 MG, UNK
  6. LUDIOMIL [Suspect]
     Active Substance: MAPROTILINE HYDROCHLORIDE
     Indication: GENERALISED ANXIETY DISORDER
     Dosage: 20 MG, DAILY
     Route: 048
     Dates: end: 200601
  7. DIAZEPAM. [Suspect]
     Active Substance: DIAZEPAM
     Dosage: 2 MG, UNK
  8. ALPRAZOLAM. [Suspect]
     Active Substance: ALPRAZOLAM
     Indication: ANXIETY
     Dosage: 60 DF, PER TWO WEEKS
     Route: 048
     Dates: start: 200601
  9. ETIZOLAN [Suspect]
     Active Substance: ETIZOLAM
     Dosage: 1.5 MG, UNK
  10. ETHYL LOFLAZEPATE [Suspect]
     Active Substance: ETHYL LOFLAZEPATE
     Dosage: 30 DF, UNK
  11. QUETIAPINE FUMARATE. [Concomitant]
     Active Substance: QUETIAPINE FUMARATE
     Dosage: 200 MG, UNK
  12. ALPRAZOLAM. [Suspect]
     Active Substance: ALPRAZOLAM
     Dosage: 2 MG, (30 DF)
     Route: 048
     Dates: start: 200601
  13. BROMAZEPAM [Suspect]
     Active Substance: BROMAZEPAM
     Dosage: 10 MG, (30 DF)
  14. OLANZAPINE. [Concomitant]
     Active Substance: OLANZAPINE
     Dosage: 5 MG, UNK

REACTIONS (9)
  - Psychiatric symptom [Unknown]
  - Drug dependence [Unknown]
  - Disinhibition [Recovering/Resolving]
  - Conversion disorder [Recovering/Resolving]
  - Anxiety [Unknown]
  - Pathological gambling [Recovering/Resolving]
  - Bipolar disorder [Recovering/Resolving]
  - Aggression [Unknown]
  - Anger [Unknown]
